FAERS Safety Report 4631471-3 (Version None)
Quarter: 2005Q2

REPORT INFORMATION
  Report Type: 
  Country: None (occurrence: None)
  Receive Date: 20050407
  Receipt Date: 20050322
  Transmission Date: 20051028
  Serious: Yes (Other)
  Sender: FDA-Public Use
  Company Number: 2005-125227-NL

PATIENT
  Age: 34 Year
  Sex: Female
  Weight: 54.4 kg

DRUGS (7)
  1. NUVARING [Suspect]
     Indication: CONTRACEPTION
     Dosage: VAGINAL
     Route: 067
     Dates: start: 20050208, end: 20050214
  2. NUVARING [Suspect]
     Indication: MENSTRUAL DISORDER
     Dosage: VAGINAL
     Route: 067
     Dates: start: 20050208, end: 20050214
  3. ULTRACET [Concomitant]
  4. MULTI-VITAMINS [Concomitant]
  5. GREEN TEA(HERBAL) [Concomitant]
  6. Z-PACK  (ANTIBIOTIC) [Concomitant]
  7. DARVOCET [Concomitant]

REACTIONS (22)
  - ABDOMINAL PAIN LOWER [None]
  - ARTHRALGIA [None]
  - ASTHENIA [None]
  - BLOOD PRESSURE INCREASED [None]
  - DYSPNOEA [None]
  - FEELING COLD [None]
  - FLUID RETENTION [None]
  - HYPOAESTHESIA [None]
  - HYPOVENTILATION [None]
  - IMPAIRED SELF-CARE [None]
  - JOINT STIFFNESS [None]
  - MENORRHAGIA [None]
  - MENSTRUATION IRREGULAR [None]
  - MUSCLE SPASMS [None]
  - NAUSEA [None]
  - OEDEMA PERIPHERAL [None]
  - PAIN [None]
  - PAIN IN EXTREMITY [None]
  - PARALYSIS [None]
  - SINUSITIS [None]
  - TREMOR [None]
  - WEIGHT INCREASED [None]
